FAERS Safety Report 19484469 (Version 2)
Quarter: 2021Q3

REPORT INFORMATION
  Report Type: Report from Study
  Country: US (occurrence: US)
  Receive Date: 20210701
  Receipt Date: 20210709
  Transmission Date: 20211014
  Serious: Yes (Other)
  Sender: FDA-Public Use
  Company Number: US-SEATTLE GENETICS-2020SGN04521

PATIENT
  Sex: Female

DRUGS (6)
  1. XELODA [Concomitant]
     Active Substance: CAPECITABINE
     Indication: BREAST CANCER FEMALE
  2. TUCATINIB [Suspect]
     Active Substance: TUCATINIB
     Dosage: 300 MG QAM, 150 MG QPM
  3. TUCATINIB [Suspect]
     Active Substance: TUCATINIB
     Dosage: UNK
  4. TUCATINIB [Suspect]
     Active Substance: TUCATINIB
     Dosage: UNK
  5. TUCATINIB [Suspect]
     Active Substance: TUCATINIB
     Indication: BREAST CANCER FEMALE
     Dosage: UNK
  6. TUCATINIB [Suspect]
     Active Substance: TUCATINIB
     Dosage: UNK

REACTIONS (10)
  - Muscle spasms [Unknown]
  - Decreased appetite [Unknown]
  - Pulmonary thrombosis [Unknown]
  - Renal disorder [Unknown]
  - Poor quality sleep [Unknown]
  - Fatigue [Unknown]
  - Hypertension [Unknown]
  - Sleep disorder [Unknown]
  - Unevaluable event [Unknown]
  - Diarrhoea [Unknown]
